FAERS Safety Report 7603495-5 (Version None)
Quarter: 2011Q3

REPORT INFORMATION
  Report Type: 
  Country: None (occurrence: None)
  Receive Date: 20110712
  Receipt Date: 20110629
  Transmission Date: 20111222
  Serious: Yes (Other)
  Sender: FDA-Public Use
  Company Number: JP-AMGEN-US406365

PATIENT
  Age: 52 Year
  Sex: Female

DRUGS (2)
  1. ETANERCEPT [Suspect]
     Indication: RHEUMATOID ARTHRITIS
     Dosage: UNK UNK, UNK
     Route: 058
     Dates: start: 20050101
  2. METHOTREXATE [Suspect]
     Dosage: UNK UNK, UNK
     Route: 048
     Dates: start: 20040101

REACTIONS (2)
  - DIFFUSE LARGE B-CELL LYMPHOMA [None]
  - UTERINE LEIOMYOMA [None]
